APPROVED DRUG PRODUCT: FOLIC ACID
Active Ingredient: FOLIC ACID
Strength: 1MG
Dosage Form/Route: TABLET;ORAL
Application: A088949 | Product #001
Applicant: PIONEER PHARMACEUTICALS INC
Approved: Sep 13, 1985 | RLD: No | RS: No | Type: DISCN